FAERS Safety Report 8431958-1 (Version None)
Quarter: 2012Q2

REPORT INFORMATION
  Report Type: 
  Country: None (occurrence: None)
  Receive Date: 20120613
  Receipt Date: 20110802
  Transmission Date: 20120825
  Serious: No
  Sender: FDA-Public Use
  Company Number: US-ASTRAZENECA-2011SE35226

PATIENT
  Age: 37 Year
  Sex: Female

DRUGS (1)
  1. RHINOCORT [Suspect]
     Route: 045
     Dates: start: 19960101

REACTIONS (6)
  - MATERNAL EXPOSURE DURING PREGNANCY [None]
  - COMPLICATION OF PREGNANCY [None]
  - SEASONAL ALLERGY [None]
  - DRUG DOSE OMISSION [None]
  - HEADACHE [None]
  - SINUS HEADACHE [None]
